FAERS Safety Report 5670890-3 (Version None)
Quarter: 2008Q1

REPORT INFORMATION
  Report Type: 
  Country: None (occurrence: None)
  Receive Date: 20080318
  Receipt Date: 20080312
  Transmission Date: 20080703
  Serious: Yes (Life-Threatening, Hospitalization, Disabling, Other)
  Sender: FDA-Public Use
  Company Number: A0714957A

PATIENT
  Age: 46 Year
  Sex: Female

DRUGS (4)
  1. LAMICTAL [Suspect]
     Indication: BIPOLAR DISORDER
     Dosage: 100MG PER DAY
     Route: 048
     Dates: start: 20080101, end: 20080201
  2. KLONOPIN [Concomitant]
  3. LOTREL [Concomitant]
  4. CLARITIN-D [Concomitant]

REACTIONS (9)
  - CUSHINGOID [None]
  - ERYTHEMA [None]
  - JOINT SWELLING [None]
  - ORGAN FAILURE [None]
  - PAIN [None]
  - PYREXIA [None]
  - RASH [None]
  - SCARLET FEVER [None]
  - STEVENS-JOHNSON SYNDROME [None]
